FAERS Safety Report 4704773-X (Version None)
Quarter: 2005Q2

REPORT INFORMATION
  Report Type: 
  Country: None (occurrence: None)
  Receive Date: 20050630
  Receipt Date: 20050616
  Transmission Date: 20051028
  Serious: Yes (Hospitalization)
  Sender: FDA-Public Use
  Company Number: 2005BI011613

PATIENT
  Age: 44 Year
  Sex: Female

DRUGS (1)
  1. AVONEX [Suspect]
     Indication: MULTIPLE SCLEROSIS

REACTIONS (9)
  - ABASIA [None]
  - BRAIN STEM SYNDROME [None]
  - COMMUNICATION DISORDER [None]
  - DIPLOPIA [None]
  - FATIGUE [None]
  - FEEDING DISORDER [None]
  - MENTAL DISORDER [None]
  - VOMITING [None]
  - WEIGHT DECREASED [None]
